FAERS Safety Report 4279060-7 (Version None)
Quarter: 2004Q1

REPORT INFORMATION
  Report Type: 
  Country: None (occurrence: None)
  Receive Date: 20040122
  Receipt Date: 20040102
  Transmission Date: 20041129
  Serious: Yes (Hospitalization)
  Sender: FDA-Public Use
  Company Number: MEDI-0001276

PATIENT
  Age: 63 Year
  Sex: Male
  Weight: 72.1219 kg

DRUGS (15)
  1. ETHYOL [Suspect]
     Indication: RADIOTHERAPY
     Dosage: QD, SUBCUTANEOUS
     Route: 058
     Dates: start: 20030826, end: 20030904
  2. PREDNISONE [Concomitant]
  3. LORTAB [Concomitant]
  4. MEGACE [Concomitant]
  5. IMODIUM (SIMETICONE, LOPERAMIDE HYDROCHLORIDE) [Concomitant]
  6. NEXIUM [Concomitant]
  7. ELDERTONIC (ETHANOL, NICOTINAMIDE, MAGNESIUM SULFATE, ZINC SULFATE, MA [Concomitant]
  8. DONNATAL [Concomitant]
  9. KYTRIL [Concomitant]
  10. OXANDRIN (OXANDROLONE) [Concomitant]
  11. PERIACTIN [Concomitant]
  12. POTASSIUM (POTASSIUM) [Concomitant]
  13. DIFLUCAN [Concomitant]
  14. RADIATION [Concomitant]
  15. UNKNOWN CHEMOTHERAPEUTIC DRUG [Concomitant]

REACTIONS (1)
  - THROMBOCYTOPENIA [None]
